FAERS Safety Report 7357057-8 (Version None)
Quarter: 2011Q1

REPORT INFORMATION
  Report Type: 
  Country: None (occurrence: None)
  Receive Date: 20110308
  Receipt Date: 20110223
  Transmission Date: 20110831
  Serious: Yes (Other)
  Sender: FDA-Public Use
  Company Number: DSM-2011-00244

PATIENT
  Age: 48 Year
  Sex: Female

DRUGS (1)
  1. IXIA PLUS (HYDROCHLOROTHIAZIDE, OLMESARTAN MEDOXOMIL) (TABLET) [Suspect]
     Indication: HYPERTENSION
     Dosage: 20/12.5MG, ORAL
     Route: 048
     Dates: start: 20100705

REACTIONS (5)
  - CHEST DISCOMFORT [None]
  - DERMATITIS [None]
  - DIZZINESS [None]
  - DYSPNOEA [None]
  - NAUSEA [None]
